FAERS Safety Report 9522419 (Version 1)
Quarter: 2013Q3

REPORT INFORMATION
  Report Type: Spontaneous
  Country: US (occurrence: None)
  Receive Date: 20130911
  Receipt Date: 20130911
  Transmission Date: 20140515
  Serious: No
  Sender: FDA-Public Use
  Company Number: AEUSA201300140

PATIENT
  Age: 66 Year
  Sex: Male

DRUGS (2)
  1. GAMUNEX-C (10 PCT) [Suspect]
     Indication: DEMYELINATING POLYNEUROPATHY
     Route: 042
     Dates: start: 201301
  2. GAMUNEX [Concomitant]

REACTIONS (1)
  - Headache [None]
